FAERS Safety Report 23933616 (Version 1)
Quarter: 2024Q2

REPORT INFORMATION
  Report Type: Spontaneous
  Country: CN (occurrence: CN)
  Receive Date: 20240603
  Receipt Date: 20240603
  Transmission Date: 20240716
  Serious: Yes (Other)
  Sender: FDA-Public Use
  Company Number: CN-009507513-2405CHN009864

PATIENT
  Age: 67 Year
  Sex: Male
  Weight: 55 kg

DRUGS (2)
  1. KEYTRUDA [Suspect]
     Active Substance: PEMBROLIZUMAB
     Indication: Hepatic cancer
     Dosage: START DATE ALSO REPORTED AS 21-APR-2024, 200 MG (2 VIAL), ONCE[ALSO REPORTED AS DAILY, CONFLICTING I
     Route: 041
     Dates: start: 20240422, end: 20240422
  2. SODIUM CHLORIDE [Concomitant]
     Active Substance: SODIUM CHLORIDE
     Indication: Medication dilution
     Dosage: START DATE ALSO REPORTED AS 21-APR-2024, 100 ML (1 BOTTLE), ONCE[ALSO REPORTED AS DAILY, CONFLICTING
     Route: 041
     Dates: start: 20240422, end: 20240422

REACTIONS (3)
  - Neutropenia [Recovering/Resolving]
  - White blood cell count decreased [Recovering/Resolving]
  - Inappropriate schedule of product administration [Unknown]

NARRATIVE: CASE EVENT DATE: 20240422
